FAERS Safety Report 17514037 (Version 4)
Quarter: 2020Q2

REPORT INFORMATION
  Report Type: Spontaneous
  Country: RU (occurrence: RU)
  Receive Date: 20200308
  Receipt Date: 20200520
  Transmission Date: 20200713
  Serious: Yes (Hospitalization, Other)
  Sender: FDA-Public Use
  Company Number: RU-BRISTOL-MYERS SQUIBB COMPANY-BMS-2020-003012

PATIENT
  Age: 74 Year
  Sex: Female

DRUGS (3)
  1. METYPRED [METHYLPREDNISOLONE] [Suspect]
     Active Substance: METHYLPREDNISOLONE
     Indication: PRODUCT USED FOR UNKNOWN INDICATION
     Dosage: 3-4 TAB PER DAY
     Route: 065
  2. METYPRED [METHYLPREDNISOLONE] [Suspect]
     Active Substance: METHYLPREDNISOLONE
     Indication: POLYMYOSITIS
     Dosage: 16 MILLIGRAM PER DAY
     Route: 065
  3. OPDIVO [Suspect]
     Active Substance: NIVOLUMAB
     Indication: MALIGNANT MELANOMA
     Dosage: 240 MILLIGRAM, TWO TIMES A MONTH
     Route: 065
     Dates: end: 20191008

REACTIONS (15)
  - Tachycardia [Unknown]
  - Myasthenic syndrome [Unknown]
  - Tremor [Unknown]
  - Pneumonitis [Unknown]
  - Gait disturbance [Unknown]
  - Vision blurred [Unknown]
  - Dysphonia [Unknown]
  - Peripheral sensory neuropathy [Unknown]
  - Neck pain [Unknown]
  - Asthenia [Unknown]
  - Dysphagia [Unknown]
  - Gastroenteritis [Recovered/Resolved]
  - Erythema [Unknown]
  - Polymyositis [Unknown]
  - Myocarditis [Unknown]
